FAERS Safety Report 5739135-X (Version None)
Quarter: 2008Q2

REPORT INFORMATION
  Report Type: 
  Country: None (occurrence: None)
  Receive Date: 20080515
  Receipt Date: 20080507
  Transmission Date: 20081010
  Serious: Yes (Other)
  Sender: FDA-Public Use
  Company Number: A0727741A

PATIENT
  Age: 53 Year
  Sex: Male
  Weight: 51 kg

DRUGS (3)
  1. LAPATINIB [Suspect]
     Dosage: 1500MG PER DAY
     Route: 048
  2. CISPLATIN [Suspect]
     Dosage: 100MGM2 CYCLIC
     Route: 042
     Dates: start: 20080228
  3. RADIATION [Suspect]
     Dosage: 4GY PER DAY
     Route: 061
     Dates: start: 20080228

REACTIONS (1)
  - DERMATITIS [None]
